FAERS Safety Report 18694559 (Version 1)
Quarter: 2020Q4

REPORT INFORMATION
  Report Type: Spontaneous
  Country: US (occurrence: US)
  Receive Date: 20201231
  Receipt Date: 20201231
  Transmission Date: 20210114
  Serious: Yes (Death)
  Sender: FDA-Public Use
  Company Number: None

PATIENT
  Age: 67 Year
  Sex: Male

DRUGS (9)
  1. TENOFOVIR 300MG [Concomitant]
     Active Substance: TENOFOVIR DISOPROXIL
  2. LABETALOL 300MG [Concomitant]
  3. TIVICAY [Concomitant]
     Active Substance: DOLUTEGRAVIR SODIUM
  4. ASPIRIN 81MG [Concomitant]
     Active Substance: ASPIRIN
  5. TENOFOVIR [Suspect]
     Active Substance: TENOFOVIR
  6. EDURANT [Concomitant]
     Active Substance: RILPIVIRINE HYDROCHLORIDE
  7. LOSARTAN 50MG [Concomitant]
     Active Substance: LOSARTAN
  8. EPIVIR 5MG/ML [Concomitant]
  9. NIFEDIPINE EXTENDED-RELEASE [Concomitant]
     Active Substance: NIFEDIPINE

REACTIONS (2)
  - Disease complication [None]
  - COVID-19 [None]

NARRATIVE: CASE EVENT DATE: 20201226
